FAERS Safety Report 7922462-5 (Version None)
Quarter: 2011Q4

REPORT INFORMATION
  Report Type: 
  Country: None (occurrence: None)
  Receive Date: 20111117
  Receipt Date: 20110120
  Transmission Date: 20120403
  Serious: No
  Sender: FDA-Public Use
  Company Number: US-AMGEN-USASP2011003647

PATIENT
  Sex: Female

DRUGS (1)
  1. ENBREL [Suspect]
     Indication: RHEUMATOID ARTHRITIS
     Dosage: 25 MG, QWK
     Dates: start: 20031001

REACTIONS (6)
  - RHEUMATOID ARTHRITIS [None]
  - COLITIS ULCERATIVE [None]
  - INJECTION SITE HAEMATOMA [None]
  - CONTUSION [None]
  - WEIGHT DECREASED [None]
  - ARTHRALGIA [None]
